FAERS Safety Report 11839908 (Version 2)
Quarter: 2015Q4

REPORT INFORMATION
  Report Type: Spontaneous
  Country: JP (occurrence: JP)
  Receive Date: 20151216
  Receipt Date: 20151216
  Transmission Date: 20160305
  Serious: Yes (Other)
  Sender: FDA-Public Use
  Company Number: JP-WATSON-2015-13821

PATIENT
  Age: 65 Year
  Sex: Male
  Weight: 67 kg

DRUGS (5)
  1. DOXORUBICIN (UNKNOWN) [Suspect]
     Active Substance: DOXORUBICIN
     Indication: TESTIS CANCER
     Dosage: 50 MG/M2 ON DAY 3
     Route: 065
  2. CYCLOPHOSPHAMIDE (UNKNOWN) [Suspect]
     Active Substance: CYCLOPHOSPHAMIDE
     Indication: TESTIS CANCER
     Dosage: 750 MG/M2 ON DAY 3
     Route: 065
  3. PREDNISOLONE (UNKNOWN) [Suspect]
     Active Substance: PREDNISOLONE
     Indication: TESTIS CANCER
     Dosage: 100 MG/BODY ON DAYS 3-7
     Route: 065
  4. VINCRISTINE (UNKNOWN) [Suspect]
     Active Substance: VINCRISTINE
     Indication: TESTIS CANCER
     Dosage: 1.4 MG/M2 ON DAY 3
     Route: 065
  5. RITUXIMAB [Suspect]
     Active Substance: RITUXIMAB
     Indication: TESTIS CANCER
     Dosage: 375 MG/M2 ON DAY 1
     Route: 065

REACTIONS (4)
  - Interstitial lung disease [Recovered/Resolved]
  - Tremor [Unknown]
  - Febrile neutropenia [Unknown]
  - Agranulocytosis [Unknown]
